FAERS Safety Report 12137965 (Version 1)
Quarter: 2016Q1

REPORT INFORMATION
  Report Type: Spontaneous
  Country: FR (occurrence: FR)
  Receive Date: 20160302
  Receipt Date: 20160302
  Transmission Date: 20160526
  Serious: Yes (Life-Threatening, Hospitalization)
  Sender: FDA-Public Use
  Company Number: FR-SA-2016SA039118

PATIENT
  Age: 46 Year
  Sex: Female

DRUGS (3)
  1. FLEXPEN [Concomitant]
     Active Substance: UNSPECIFIED INGREDIENT
     Indication: TOXICITY TO VARIOUS AGENTS
     Dates: start: 20160131, end: 20160131
  2. NOVORAPID [Suspect]
     Active Substance: INSULIN ASPART
     Indication: TOXICITY TO VARIOUS AGENTS
     Route: 058
     Dates: start: 20160131, end: 20160131
  3. LANTUS [Suspect]
     Active Substance: INSULIN GLARGINE
     Indication: TOXICITY TO VARIOUS AGENTS
     Route: 058
     Dates: start: 20160131, end: 20160131

REACTIONS (3)
  - Hypotension [Recovered/Resolved]
  - Hypothermia [Recovered/Resolved]
  - Hypoglycaemic coma [Recovered/Resolved]

NARRATIVE: CASE EVENT DATE: 20160131
